FAERS Safety Report 9254850 (Version 1)
Quarter: 2013Q2

REPORT INFORMATION
  Report Type: Spontaneous
  Country: US (occurrence: US)
  Receive Date: 20130425
  Receipt Date: 20130425
  Transmission Date: 20140414
  Serious: Yes (Hospitalization)
  Sender: FDA-Public Use
  Company Number: US-BAYER-2013-050809

PATIENT
  Age: 43 Year
  Sex: Female
  Weight: 128.35 kg

DRUGS (48)
  1. YAZ [Suspect]
     Indication: PREMENSTRUAL DYSPHORIC DISORDER
  2. YAZ [Suspect]
     Indication: CONTRACEPTION
  3. YAZ [Suspect]
     Indication: MENOPAUSAL SYMPTOMS
  4. BEYAZ [Suspect]
  5. GIANVI [Suspect]
  6. YASMIN [Suspect]
  7. OCELLA [Suspect]
  8. PROMETHAZINE [Concomitant]
     Dosage: 25 MG, UNK
     Route: 048
     Dates: start: 20111002
  9. PROMETHAZINE [Concomitant]
     Dosage: 12.5 MG,Q 6 HR PRN
     Route: 048
     Dates: start: 20111019
  10. HYDROMORPHONE [Concomitant]
     Dosage: 2.0 MG, UNK
     Route: 048
     Dates: start: 20111002
  11. FLUVIRIN [Concomitant]
     Dosage: UNK
     Dates: start: 20110910
  12. ANTIBIOTICS [Concomitant]
  13. NSAID^S [Concomitant]
  14. DILAUDID [Concomitant]
     Dosage: 2.0 MG, ONE Q 4-6 HRS
     Route: 048
     Dates: start: 20111001
  15. PROMETHAZINE HYDROCHLORIDE [Concomitant]
     Dosage: 25 MG,1 TAB Q 6 HRS AS NEEDED
     Route: 048
     Dates: start: 20111001
  16. CYPROHEPTADINE [Concomitant]
     Dosage: 4.0 MG, TID, PRN
     Route: 048
     Dates: start: 20111019
  17. DIFLUCAN [Concomitant]
     Dosage: 150 MG, PRN
     Route: 048
     Dates: start: 20111019
  18. VALTREX [Concomitant]
     Dosage: 500 MG, PRN
     Route: 048
     Dates: start: 20111019
  19. ALBUTEROL [Concomitant]
     Dosage: 2 PUFF(S), Q4HR, PRN
     Route: 045
     Dates: start: 20110219
  20. CYCLOBENZAPRINE [Concomitant]
     Dosage: 10 MG, BID
     Dates: start: 20111019
  21. AMITRIPTYLINE [Concomitant]
     Dosage: 50 MG, AT BEDTIME PRN
     Dates: start: 20111019
  22. ATOMOXETINE [Concomitant]
     Dosage: 12 MG, ONE IN AM
     Route: 048
     Dates: start: 20111019
  23. GABAPENTIN [Concomitant]
     Dosage: 800 MG, AT BEDTIME
     Route: 048
     Dates: start: 20111019
  24. INDOMETHACIN [Concomitant]
     Dosage: 50 MG, TID PRN
     Route: 048
     Dates: start: 20111019
  25. DEMEROL [Concomitant]
     Dosage: 50-100 Q6H, PRN
     Route: 048
     Dates: start: 20111019
  26. TRAMADOL [Concomitant]
     Dosage: 50 MG, Q 6 HRS, PRN
     Route: 048
     Dates: start: 20111019
  27. ZIPRASIDONE [Concomitant]
     Dosage: 120 AT BEDTIME,
     Route: 048
     Dates: start: 20111019
  28. ZIPRASIDONE [Concomitant]
     Dosage: 20 MG 2 TABLETS IN THE AM
     Route: 048
     Dates: start: 20111019
  29. CLONAZEPAM [Concomitant]
     Dosage: 0.5 MG, 4 TIMES PER AS NEEDED
     Route: 048
     Dates: start: 20111019
  30. LAMICTAL [Concomitant]
     Dosage: 400 MG, ONE IN THE MORNING
     Route: 048
     Dates: start: 20111019
  31. RISPERDAL [Concomitant]
     Dosage: 1.0 MG, AT BEDTIME
  32. RISPERDAL [Concomitant]
     Dosage: 0.5 MG, IN PM
     Route: 048
     Dates: start: 20111019
  33. LYSINE [Concomitant]
     Dosage: 500 MG, 1 CAPSULE AT BEDTIME
     Route: 048
     Dates: start: 20111019
  34. ACTIGALL [Concomitant]
     Dosage: 600 MG, AT BEDSIDE
     Route: 048
     Dates: start: 20111019
  35. ACTIGALL [Concomitant]
     Dosage: 300 MG, ON A DAILY BASIS
     Route: 048
     Dates: start: 20111019
  36. VITAMIN D [Concomitant]
     Dosage: 50 IU, MON AND THURS
     Route: 048
     Dates: start: 20111019
  37. VITAMIN A [Concomitant]
     Dosage: ONE CAPSULE AT BEDTIME
     Route: 048
     Dates: start: 20111019
  38. VITAMIN D 1 [Concomitant]
     Dosage: ONE CAPSULE AT BEDTIME
     Route: 048
     Dates: start: 20111019
  39. COENZYME Q10 [Concomitant]
     Dosage: 100 MG ONE A DAY
     Route: 048
     Dates: start: 20111019
  40. CALCIUM [Concomitant]
     Dosage: ONE TABLE ONCE PER DAY
     Route: 048
     Dates: start: 20111019
  41. PRENATAL VITAMINS [VIT C,B5,B12,D2,B3,B6,RETINOL PALMIT,B2,B1 MONO [Concomitant]
     Dosage: ONE TABLET AT BEDTIME
     Route: 048
     Dates: start: 20111019
  42. VITAMIN B 50 [Concomitant]
     Dosage: ONE TABLET AT BEDTIME
     Route: 048
     Dates: start: 20111019
  43. PREMPRO [Concomitant]
     Dosage: ONE TABLET AT BEDTIME
     Route: 048
     Dates: start: 20111019
  44. FLUCONAZOLE [Concomitant]
  45. KLONOPIN [Concomitant]
  46. INDOCIN [Concomitant]
  47. GEODON [Concomitant]
     Indication: PREMENSTRUAL DYSPHORIC DISORDER
  48. GEODON [Concomitant]
     Indication: CONTRACEPTION

REACTIONS (2)
  - Pulmonary embolism [Recovered/Resolved]
  - Deep vein thrombosis [Recovered/Resolved]
